FAERS Safety Report 11020365 (Version 1)
Quarter: 2015Q2

REPORT INFORMATION
  Report Type: Spontaneous
  Country: US (occurrence: US)
  Receive Date: 20150413
  Receipt Date: 20150413
  Transmission Date: 20150821
  Serious: No
  Sender: FDA-Public Use
  Company Number: US-ASTRAZENECA-2015SE31966

PATIENT

DRUGS (3)
  1. NEXIUM [Suspect]
     Active Substance: ESOMEPRAZOLE MAGNESIUM
     Route: 048
  2. VIT.D3 [Concomitant]
     Route: 065
  3. VIT.D3 [Concomitant]
     Route: 065

REACTIONS (3)
  - Magnesium deficiency [Unknown]
  - Muscle spasms [Unknown]
  - Vitamin D deficiency [Unknown]
